FAERS Safety Report 7477633-1 (Version None)
Quarter: 2011Q2

REPORT INFORMATION
  Report Type: 
  Country: None (occurrence: None)
  Receive Date: 20110513
  Receipt Date: 20110408
  Transmission Date: 20111010
  Serious: Yes (Hospitalization, Other)
  Sender: FDA-Public Use
  Company Number: US-BAYER-201027352NA

PATIENT
  Age: 25 Year
  Sex: Female
  Weight: 99.773 kg

DRUGS (5)
  1. YAZ [Suspect]
     Indication: MENSTRUAL CYCLE MANAGEMENT
     Dosage: UNK UNK, UNK
     Route: 048
     Dates: start: 20080101, end: 20080901
  2. IBUPROFEN [Concomitant]
  3. DROSPIRENONE AND ETHINYL ESTRADIOL [Suspect]
     Indication: MENSTRUAL CYCLE MANAGEMENT
     Dosage: UNK UNK, UNK
     Route: 048
     Dates: start: 20080101, end: 20080901
  4. YASMIN [Suspect]
     Indication: MENSTRUAL CYCLE MANAGEMENT
     Dosage: UNK UNK, UNK
     Route: 048
     Dates: start: 20080101, end: 20080901
  5. METFORMIN HCL [Concomitant]
     Indication: INSULIN RESISTANCE

REACTIONS (4)
  - GALLBLADDER INJURY [None]
  - INSOMNIA [None]
  - CHOLELITHIASIS [None]
  - GALLBLADDER DISORDER [None]
